FAERS Safety Report 18259332 (Version 1)
Quarter: 2020Q3

REPORT INFORMATION
  Report Type: Spontaneous
  Country: GB (occurrence: GB)
  Receive Date: 20200911
  Receipt Date: 20200911
  Transmission Date: 20201103
  Serious: Yes (Other)
  Sender: FDA-Public Use
  Company Number: GB-TOLMAR, INC.-20GB022609

PATIENT
  Age: 63 Year
  Sex: Male

DRUGS (3)
  1. ACYCLOVIR. [Suspect]
     Active Substance: ACYCLOVIR
     Indication: NECROTISING RETINITIS
     Dosage: 13 MG/KG, TID
     Route: 042
  2. ACYCLOVIR. [Suspect]
     Active Substance: ACYCLOVIR
     Dosage: 400 MG, BID
     Route: 065
  3. FOSCARNET [Suspect]
     Active Substance: FOSCARNET
     Indication: NECROTISING RETINITIS
     Dosage: 2.4 MG/0.1 ML, BID

REACTIONS (1)
  - Vitritis [Recovered/Resolved]
